FAERS Safety Report 20741255 (Version 1)
Quarter: 2022Q2

REPORT INFORMATION
  Report Type: Spontaneous
  Country: US (occurrence: US)
  Receive Date: 20220422
  Receipt Date: 20220422
  Transmission Date: 20220721
  Serious: No
  Sender: FDA-Public Use
  Company Number: US-PFIZER INC-202200584920

PATIENT
  Age: 66 Year
  Sex: Female
  Weight: 67.13 kg

DRUGS (1)
  1. RUXIENCE [Suspect]
     Active Substance: RITUXIMAB-PVVR
     Dosage: UNK
     Route: 042

REACTIONS (2)
  - Dizziness [Unknown]
  - Gait disturbance [Unknown]
